FAERS Safety Report 8281846-9 (Version None)
Quarter: 2012Q2

REPORT INFORMATION
  Report Type: 
  Country: None (occurrence: None)
  Receive Date: 20120413
  Receipt Date: 20120410
  Transmission Date: 20120825
  Serious: Yes (Death, Hospitalization, Other)
  Sender: FDA-Public Use
  Company Number: PHHY2012DE026545

PATIENT
  Sex: Female

DRUGS (4)
  1. ACE INHIBITOR NOS [Concomitant]
  2. RASILEZ [Suspect]
     Indication: HYPERTENSION
     Dosage: 150 MG, DAILY
     Dates: start: 20081124, end: 20110525
  3. SIMVASTATIN [Suspect]
     Indication: HYPERCHOLESTEROLAEMIA
  4. SIMVASTATIN [Suspect]
     Indication: DIABETES MELLITUS
     Dosage: 1 DF, QD
     Dates: start: 20051019

REACTIONS (5)
  - RENAL FAILURE [None]
  - MULTI-ORGAN FAILURE [None]
  - CHRONIC OBSTRUCTIVE PULMONARY DISEASE [None]
  - HYPERCHOLESTEROLAEMIA [None]
  - CORONARY ARTERY DISEASE [None]
